FAERS Safety Report 8255096 (Version 5)
Quarter: 2013Q3

REPORT INFORMATION
  Report Type: Spontaneous
  Country: US (occurrence: US)
  Receive Date: 20111118
  Receipt Date: 20130718
  Transmission Date: 20140515
  Serious: Yes (Death, Congenital Anomaly, Other)
  Sender: FDA-Public Use
  Company Number: US-PFIZER INC-2011274679

PATIENT
  Sex: Female

DRUGS (9)
  1. ZOLOFT [Suspect]
     Indication: DEPRESSION
     Dosage: UNK
     Route: 064
     Dates: start: 2006, end: 2010
  2. ZOLOFT [Suspect]
     Dosage: 50 MG, 1X/DAY
     Route: 064
     Dates: start: 20080619
  3. ZOLOFT [Suspect]
     Dosage: 50 MG, UNK
     Route: 064
  4. SERTRALINE HCL [Suspect]
     Dosage: UNK
     Route: 064
  5. PRENATAL VITAMINS [Concomitant]
     Dosage: UNK
     Route: 064
  6. ALBUTEROL [Concomitant]
     Indication: ASTHMA
     Dosage: AS NEEDED
     Route: 064
  7. LOTENSIN [Concomitant]
     Dosage: UNK
     Route: 064
  8. PROMETHAZINE [Concomitant]
     Dosage: UNK
     Route: 064
  9. ENALAPRIL [Concomitant]
     Dosage: UNK
     Route: 064

REACTIONS (4)
  - Maternal exposure timing unspecified [Fatal]
  - Transposition of the great vessels [Fatal]
  - Congenital pulmonary hypertension [Fatal]
  - Premature baby [Unknown]
